FAERS Safety Report 7248018-8 (Version None)
Quarter: 2011Q1

REPORT INFORMATION
  Report Type: 
  Country: None (occurrence: None)
  Receive Date: 20110127
  Receipt Date: 20110118
  Transmission Date: 20110831
  Serious: Yes (Other)
  Sender: FDA-Public Use
  Company Number: US-JNJFOC-20110105113

PATIENT
  Sex: Male

DRUGS (3)
  1. KLONOPIN [Concomitant]
     Indication: NERVOUSNESS
     Route: 048
  2. HALDOL [Concomitant]
     Indication: SCHIZOPHRENIA
     Route: 048
  3. RISPERDAL [Suspect]
     Indication: SCHIZOPHRENIA
     Route: 048

REACTIONS (5)
  - LOSS OF LIBIDO [None]
  - EMOTIONAL DISORDER [None]
  - FALL [None]
  - WEIGHT INCREASED [None]
  - ABNORMAL BEHAVIOUR [None]
